FAERS Safety Report 20130721 (Version 2)
Quarter: 2021Q4

REPORT INFORMATION
  Report Type: Spontaneous
  Country: CH (occurrence: CH)
  Receive Date: 20211130
  Receipt Date: 20211210
  Transmission Date: 20220303
  Serious: Yes (Hospitalization, Other)
  Sender: FDA-Public Use
  Company Number: CH-009507513-2111CHE009913

PATIENT
  Age: 79 Year
  Sex: Male

DRUGS (3)
  1. PEMBROLIZUMAB [Suspect]
     Active Substance: PEMBROLIZUMAB
     Indication: Malignant melanoma
     Dosage: TWO CYCLES
  2. IPILIMUMAB [Suspect]
     Active Substance: IPILIMUMAB
     Indication: Malignant melanoma
     Dosage: THREE CYCLES
  3. NIVOLUMAB [Suspect]
     Active Substance: NIVOLUMAB
     Indication: Malignant melanoma
     Dosage: THREE CYCLES

REACTIONS (2)
  - Immune-mediated myocarditis [Recovering/Resolving]
  - Orbital myositis [Unknown]
